FAERS Safety Report 6767352-9 (Version None)
Quarter: 2010Q2

REPORT INFORMATION
  Report Type: 
  Country: None (occurrence: None)
  Receive Date: 20100614
  Receipt Date: 20100512
  Transmission Date: 20101027
  Serious: No
  Sender: FDA-Public Use
  Company Number: US-BAYER-201015527BCC

PATIENT
  Age: 31 Year
  Sex: Female
  Weight: 58 kg

DRUGS (3)
  1. ALEVE [Suspect]
     Indication: TOOTHACHE
     Dosage: TOTAL DAILY DOSE: 440 MG  UNIT DOSE: 220 MG
     Route: 048
     Dates: start: 20100503
  2. ALEVE SOFT GELS [Suspect]
     Indication: TOOTHACHE
     Dosage: TOTAL DAILY DOSE: 440 MG  UNIT DOSE: 220 MG
     Route: 048
     Dates: start: 20100512
  3. IBUPROFEN [Concomitant]
     Route: 065
     Dates: start: 20100509

REACTIONS (1)
  - FLATULENCE [None]
